FAERS Safety Report 9287294 (Version 2)
Quarter: 2013Q2

REPORT INFORMATION
  Report Type: Spontaneous
  Country: FI (occurrence: FI)
  Receive Date: 20130513
  Receipt Date: 20130523
  Transmission Date: 20140414
  Serious: Yes (Disabling)
  Sender: FDA-Public Use
  Company Number: FI-009507513-1305FIN005357

PATIENT
  Age: 23 Year
  Sex: Female

DRUGS (1)
  1. NUVARING [Suspect]
     Dosage: UNK
     Route: 067
     Dates: start: 2007, end: 201208

REACTIONS (16)
  - General physical health deterioration [Not Recovered/Not Resolved]
  - Impaired work ability [Not Recovered/Not Resolved]
  - Mental disorder [Unknown]
  - Hyperhidrosis [Recovering/Resolving]
  - Hypoglycaemia [Recovering/Resolving]
  - Irritability [Recovering/Resolving]
  - Aggression [Recovering/Resolving]
  - Neuralgia [Recovering/Resolving]
  - Arthralgia [Recovering/Resolving]
  - Muscle tightness [Recovering/Resolving]
  - Middle insomnia [Recovering/Resolving]
  - Anger [Recovering/Resolving]
  - Fatigue [Recovering/Resolving]
  - Depression [Recovering/Resolving]
  - Migraine [Recovering/Resolving]
  - Acne [Not Recovered/Not Resolved]
